FAERS Safety Report 13188710 (Version 1)
Quarter: 2017Q1

REPORT INFORMATION
  Report Type: Spontaneous
  Country: US (occurrence: US)
  Receive Date: 20170205
  Receipt Date: 20170205
  Transmission Date: 20170428
  Serious: Yes (Disabling, Other)
  Sender: FDA-Public Use
  Company Number: None

PATIENT
  Age: 46 Year
  Sex: Female
  Weight: 67.5 kg

DRUGS (7)
  1. ABILIFY [Suspect]
     Active Substance: ARIPIPRAZOLE
     Indication: BIPOLAR I DISORDER
     Dosage: ?          QUANTITY:30 TABLET(S);?
     Route: 048
     Dates: start: 20070416
  2. PRISIQUE [Concomitant]
  3. ROD IN MY FEMER [Concomitant]
  4. PLATE IN MY LEFT KNEE [Concomitant]
  5. SCREW IN THE UPPER PART OF MY LEG [Concomitant]
  6. ESTROGENS [Concomitant]
     Active Substance: ESTROGENS
  7. TRISIDONE [Concomitant]

REACTIONS (1)
  - Choking [None]

NARRATIVE: CASE EVENT DATE: 20070416
